FAERS Safety Report 20734993 (Version 1)
Quarter: 2022Q2

REPORT INFORMATION
  Report Type: Spontaneous
  Country: US (occurrence: US)
  Receive Date: 20220421
  Receipt Date: 20220421
  Transmission Date: 20220720
  Serious: No
  Sender: FDA-Public Use
  Company Number: US-BAYER-2022A052847

PATIENT
  Sex: Female

DRUGS (1)
  1. CIPRO [Suspect]
     Active Substance: CIPROFLOXACIN HYDROCHLORIDE
     Indication: Urinary tract infection
     Route: 048

REACTIONS (9)
  - Tendon injury [None]
  - Muscle atrophy [None]
  - Fatigue [None]
  - Feeling abnormal [None]
  - Panic attack [None]
  - Neuralgia [None]
  - Pain in extremity [None]
  - Neck pain [None]
  - Nightmare [None]
